FAERS Safety Report 15468954 (Version 2)
Quarter: 2025Q4

REPORT INFORMATION
  Report Type: Spontaneous
  Country: EU (occurrence: EU)
  Receive Date: 20181005
  Receipt Date: 20251021
  Transmission Date: 20260118
  Serious: Yes (Other)
  Sender: TAKEDA
  Company Number: None

PATIENT
  Age: 63 Year
  Sex: Female

DRUGS (5)
  1. BRINTELLIX [Suspect]
     Active Substance: VORTIOXETINE HYDROBROMIDE
     Indication: Product used for unknown indication
     Dosage: 2.5 MILLIGRAM
  2. BRINTELLIX [Suspect]
     Active Substance: VORTIOXETINE HYDROBROMIDE
     Dosage: 5 MILLIGRAM
  3. BRINTELLIX [Suspect]
     Active Substance: VORTIOXETINE HYDROBROMIDE
     Dosage: 10 MILLIGRAM, QD
  4. EUTHYROX [Concomitant]
     Active Substance: LEVOTHYROXINE SODIUM
     Indication: Product used for unknown indication
     Dosage: 1 DOSAGE FORM
  5. XANAX [Concomitant]
     Active Substance: ALPRAZOLAM
     Indication: Anxiety
     Dosage: 1 DOSAGE FORM

REACTIONS (14)
  - Oedema mouth [Recovering/Resolving]
  - Fatigue [Recovering/Resolving]
  - Contusion [Recovering/Resolving]
  - Abnormal loss of weight [Recovering/Resolving]
  - Nausea [Recovering/Resolving]
  - Hypotension [Recovered/Resolved]
  - Epistaxis [Recovering/Resolving]
  - Joint swelling [Recovering/Resolving]
  - Hallucination [Recovering/Resolving]
  - Dry mouth [Recovering/Resolving]
  - Eyelid oedema [Recovering/Resolving]
  - Headache [Recovering/Resolving]
  - Underdose [Unknown]
  - Wrong technique in product usage process [Unknown]
